FAERS Safety Report 8457757-2 (Version None)
Quarter: 2012Q2

REPORT INFORMATION
  Report Type: 
  Country: None (occurrence: None)
  Receive Date: 20120618
  Receipt Date: 20120618
  Transmission Date: 20120825
  Serious: Yes (Other)
  Sender: FDA-Public Use
  Company Number: None

PATIENT
  Age: 32 Year
  Sex: Male
  Weight: 83.9154 kg

DRUGS (1)
  1. LEVOFLOXACIN [Suspect]
     Indication: SINUSITIS
     Dosage: 500 MG 1 X DAY PO
     Route: 048
     Dates: start: 20120501, end: 20120509

REACTIONS (4)
  - SPINAL PAIN [None]
  - TOXICITY TO VARIOUS AGENTS [None]
  - MYALGIA [None]
  - BACK PAIN [None]
